FAERS Safety Report 12375054 (Version 1)
Quarter: 2016Q2

REPORT INFORMATION
  Report Type: Spontaneous
  Country: US (occurrence: None)
  Receive Date: 20160516
  Receipt Date: 20160516
  Transmission Date: 20160815
  Serious: Yes (Hospitalization)
  Sender: FDA-Public Use
  Company Number: None

PATIENT
  Age: 27 Year
  Sex: Female
  Weight: 87.09 kg

DRUGS (5)
  1. SODIUM BICARBONATE. [Concomitant]
     Active Substance: SODIUM BICARBONATE
  2. OXYCONTIN [Concomitant]
     Active Substance: OXYCODONE HYDROCHLORIDE
  3. LIORESAL [Suspect]
     Active Substance: BACLOFEN
     Indication: MUSCLE SPASMS
     Route: 048
     Dates: start: 20160508, end: 20160508
  4. AMBIAN [Concomitant]
  5. NEROUTAIN [Concomitant]

REACTIONS (6)
  - Motor dysfunction [None]
  - Brain injury [None]
  - Seizure [None]
  - Coma [None]
  - Renal failure [None]
  - Memory impairment [None]

NARRATIVE: CASE EVENT DATE: 20160508
